FAERS Safety Report 14346224 (Version 2)
Quarter: 2018Q1

REPORT INFORMATION
  Report Type: Spontaneous
  Country: FR (occurrence: FR)
  Receive Date: 20180103
  Receipt Date: 20180201
  Transmission Date: 20180509
  Serious: Yes (Other)
  Sender: FDA-Public Use
  Company Number: FR-PFIZER INC-2017554382

PATIENT
  Age: 61 Year
  Sex: Male

DRUGS (2)
  1. OLMESARTAN MEDOXOMIL. [Suspect]
     Active Substance: OLMESARTAN MEDOXOMIL
     Indication: BLOOD PRESSURE MANAGEMENT
     Dosage: 40 MG, 1X/DAY
     Route: 065
     Dates: start: 2014
  2. AMLODIPINE [Suspect]
     Active Substance: AMLODIPINE BESYLATE
     Indication: BLOOD PRESSURE MANAGEMENT
     Dosage: 5 MG, 1X/DAY
     Route: 065
     Dates: start: 2014

REACTIONS (1)
  - Drug-induced liver injury [Recovered/Resolved]
